FAERS Safety Report 7253321-1 (Version None)
Quarter: 2011Q1

REPORT INFORMATION
  Report Type: 
  Country: None (occurrence: None)
  Receive Date: 20110129
  Receipt Date: 20100405
  Transmission Date: 20110831
  Serious: Yes (Hospitalization, Other)
  Sender: FDA-Public Use
  Company Number: US-ABBOTT-10P-163-0635733-00

PATIENT
  Sex: Male

DRUGS (1)
  1. HUMIRA [Suspect]
     Indication: CROHN'S DISEASE
     Dates: start: 20100312

REACTIONS (9)
  - PNEUMONIA [None]
  - PAIN [None]
  - STREPTOCOCCAL INFECTION [None]
  - DYSPNOEA [None]
  - INCISION SITE ERYTHEMA [None]
  - PURULENT DISCHARGE [None]
  - PYREXIA [None]
  - CHILLS [None]
  - CROHN'S DISEASE [None]
